FAERS Safety Report 4951956-X (Version None)
Quarter: 2006Q1

REPORT INFORMATION
  Report Type: 
  Country: None (occurrence: None)
  Receive Date: 20060323
  Receipt Date: 20051222
  Transmission Date: 20060701
  Serious: Yes (Death, Hospitalization)
  Sender: FDA-Public Use
  Company Number: DE-ROCHE-429655

PATIENT
  Age: 60 Year
  Sex: Female
  Weight: 71 kg

DRUGS (8)
  1. CAPECITABINE [Suspect]
     Indication: BREAST CANCER
     Dosage: DAYS 1-14 Q 21 DAYS
     Route: 048
     Dates: start: 20051010, end: 20051219
  2. TAXOL [Suspect]
     Indication: BREAST CANCER
     Route: 042
     Dates: start: 20051010, end: 20051212
  3. EPIRUBICIN [Suspect]
     Indication: BREAST CANCER
     Route: 065
     Dates: start: 20050815, end: 20050926
  4. CYCLOPHOSPHAMIDE [Suspect]
     Indication: BREAST CANCER
     Route: 065
     Dates: start: 20050815, end: 20050926
  5. NEORECORMON [Suspect]
     Indication: DRUG USE FOR UNKNOWN INDICATION
     Route: 058
     Dates: start: 20050829
  6. ZOFRAN [Concomitant]
     Route: 048
     Dates: start: 20050829, end: 20051216
  7. AVELOX [Concomitant]
     Route: 048
     Dates: start: 20051212, end: 20051220
  8. AMPHO-MORONAL [Concomitant]
     Route: 048
     Dates: start: 20051121

REACTIONS (5)
  - ALVEOLITIS [None]
  - DYSPNOEA [None]
  - PNEUMONIA [None]
  - PULMONARY FIBROSIS [None]
  - VIRAL INFECTION [None]
